FAERS Safety Report 8757463 (Version 3)
Quarter: 2012Q4

REPORT INFORMATION
  Report Type: Report from Study
  Country: US (occurrence: US)
  Receive Date: 20120828
  Receipt Date: 20121115
  Transmission Date: 20130627
  Serious: Yes (Other)
  Sender: FDA-Public Use
  Company Number: US-US-EMD SERONO, INC.-7156444

PATIENT
  Sex: Female

DRUGS (3)
  1. REBIF [Suspect]
     Indication: PRODUCT USED FOR UNKNOWN INDICATION
     Route: 058
     Dates: start: 20100221
  2. TYLENOL [Concomitant]
     Indication: PREMEDICATION
  3. ADVIL [Concomitant]
     Indication: PREMEDICATION

REACTIONS (1)
  - Neoplasm [Recovered/Resolved]
